FAERS Safety Report 6219769-9 (Version None)
Quarter: 2009Q2

REPORT INFORMATION
  Report Type: 
  Country: None (occurrence: None)
  Receive Date: 20090609
  Receipt Date: 20090526
  Transmission Date: 20091009
  Serious: Yes (Hospitalization)
  Sender: FDA-Public Use
  Company Number: A0789123A

PATIENT
  Age: 51 Year
  Sex: Male
  Weight: 103.6 kg

DRUGS (5)
  1. AVANDIA [Suspect]
     Dosage: 4MG PER DAY
     Route: 048
     Dates: start: 20000523, end: 20070228
  2. WELLBUTRIN SR [Concomitant]
  3. COMBIVENT [Concomitant]
  4. UNIVASC [Concomitant]
  5. PROZAC [Concomitant]

REACTIONS (2)
  - CEREBROVASCULAR ACCIDENT [None]
  - CEREBROVASCULAR DISORDER [None]
